FAERS Safety Report 11139243 (Version 1)
Quarter: 2015Q2

REPORT INFORMATION
  Report Type: Report from Study
  Country: US (occurrence: US)
  Receive Date: 20150527
  Receipt Date: 20150527
  Transmission Date: 20150821
  Serious: Yes (Other)
  Sender: FDA-Public Use
  Company Number: US-ROCHE-1582607

PATIENT
  Sex: Female
  Weight: 76.27 kg

DRUGS (8)
  1. CARVEDILOL. [Concomitant]
     Active Substance: CARVEDILOL
     Dosage: ONE IN THE MORNING, ONE AT NIGHT.
     Route: 048
     Dates: start: 2004
  2. OMEPRAZOLE. [Concomitant]
     Active Substance: OMEPRAZOLE
     Indication: DYSPEPSIA
     Dosage: STARTED MEDICATION 6 YEARS AGO.
     Route: 048
  3. CRANBERRY. [Concomitant]
     Active Substance: CRANBERRY
     Dosage: SOFT GELS
     Route: 048
  4. ESTRADIOL. [Concomitant]
     Active Substance: ESTRADIOL
     Indication: HOT FLUSH
     Route: 048
     Dates: start: 201504
  5. FISH OIL [Concomitant]
     Active Substance: FISH OIL
     Route: 048
  6. GLYCERYL TRINITRATE [Concomitant]
     Active Substance: NITROGLYCERIN
     Dosage: PUTS IT ON IN THE MORNING, TAKES IT OFF AT NIGHT.
     Route: 062
     Dates: start: 2004
  7. LUCENTIS [Suspect]
     Active Substance: RANIBIZUMAB
     Indication: NEOVASCULAR AGE-RELATED MACULAR DEGENERATION
     Route: 050
     Dates: start: 2014
  8. SIMVASTATIN. [Concomitant]
     Active Substance: SIMVASTATIN
     Indication: BLOOD CHOLESTEROL
     Route: 048
     Dates: start: 2004

REACTIONS (6)
  - Ocular discomfort [Recovered/Resolved with Sequelae]
  - Eye swelling [Recovered/Resolved with Sequelae]
  - Eyelid oedema [Recovered/Resolved with Sequelae]
  - Foreign body sensation in eyes [Recovered/Resolved]
  - Eye pain [Recovered/Resolved with Sequelae]
  - Eye irritation [Recovered/Resolved with Sequelae]

NARRATIVE: CASE EVENT DATE: 2014
